FAERS Safety Report 8018358-3 (Version None)
Quarter: 2012Q1

REPORT INFORMATION
  Report Type: 
  Country: None (occurrence: None)
  Receive Date: 20120103
  Receipt Date: 20111229
  Transmission Date: 20120608
  Serious: Yes (Other)
  Sender: FDA-Public Use
  Company Number: US-PFIZER INC-2005036330

PATIENT
  Sex: Male

DRUGS (4)
  1. XANAX [Suspect]
     Dosage: 5 MG, 3X/DAY
     Route: 048
  2. XANAX [Suspect]
     Indication: NEUROPATHY PERIPHERAL
     Dosage: 1 MG, 3X/DAY
     Route: 048
     Dates: start: 19900101
  3. XANAX [Suspect]
     Dosage: 1 MG, 3X/DAY
     Route: 048
  4. ELAVIL [Suspect]
     Indication: NEUROPATHY PERIPHERAL
     Dosage: UNK

REACTIONS (12)
  - CONFUSIONAL STATE [None]
  - PAIN [None]
  - DISTURBANCE IN ATTENTION [None]
  - SPEECH DISORDER [None]
  - INSOMNIA [None]
  - HEADACHE [None]
  - ANXIETY [None]
  - SUICIDAL IDEATION [None]
  - DEPRESSION [None]
  - AMNESIA [None]
  - DRUG INEFFECTIVE [None]
  - PAIN IN EXTREMITY [None]
